FAERS Safety Report 8152474-0 (Version None)
Quarter: 2012Q1

REPORT INFORMATION
  Report Type: 
  Country: None (occurrence: None)
  Receive Date: 20120221
  Receipt Date: 20120215
  Transmission Date: 20120608
  Serious: Yes (Hospitalization)
  Sender: FDA-Public Use
  Company Number: US-BAYER-2012-016722

PATIENT
  Age: 22 Year
  Sex: Female

DRUGS (10)
  1. ALBUTEROL INHALER [Concomitant]
  2. ROBITUSSIN DM [DEXTROMETHORPHAN HYDROBROMIDE,ETHANOL,GUAIFENESIN] [Concomitant]
  3. CHEMISTS OWN COUGH SUPPRESSANT [Concomitant]
  4. ZOLOFT [Concomitant]
  5. CONCERTA [Concomitant]
  6. ANTACIDS [Concomitant]
     Indication: NAUSEA
  7. MUCINEX [Concomitant]
     Indication: BRONCHITIS
  8. YAZ [Suspect]
  9. ZITHROMAX [Concomitant]
     Indication: BRONCHITIS
  10. YASMIN [Suspect]

REACTIONS (1)
  - PULMONARY EMBOLISM [None]
